FAERS Safety Report 4999991-X (Version None)
Quarter: 2006Q2

REPORT INFORMATION
  Report Type: 
  Country: None (occurrence: None)
  Receive Date: 20060501
  Receipt Date: 20060405
  Transmission Date: 20061013
  Serious: Yes (Other)
  Sender: FDA-Public Use
  Company Number: 2006055414

PATIENT
  Age: 40 Year
  Sex: Male
  Weight: 76 kg

DRUGS (13)
  1. SUTENT [Suspect]
     Indication: RENAL CELL CARCINOMA STAGE UNSPECIFIED
     Dosage: 37.5 MG (37.5 MG, DAILY FOR 4 WEEKS, 2 WEEKS OFF), ORAL
     Route: 048
     Dates: start: 20060111
  2. HYDROMORPHONE HYDROCHLORIDE [Concomitant]
  3. GABAPENTIN [Concomitant]
  4. DOCUSATE SODIUM [Concomitant]
  5. SODIUM POLYSTYRENE SULFONATE [Concomitant]
  6. NIFEDIPINE [Concomitant]
  7. CANDESARTAN CILEXETIL [Concomitant]
  8. PRAVASTATIN SODIUM [Concomitant]
  9. MULTIVITAMIN [Concomitant]
  10. EPOETIN ALFA [Concomitant]
  11. SEVELAMER HYDROCHLORIDE [Concomitant]
  12. LORAZEPAM [Concomitant]
  13. PANTOPRAZOLE SODIUM [Concomitant]

REACTIONS (2)
  - BUDD-CHIARI SYNDROME [None]
  - HEPATOMEGALY [None]
